FAERS Safety Report 4680082-2 (Version None)
Quarter: 2005Q2

REPORT INFORMATION
  Report Type: 
  Country: None (occurrence: None)
  Receive Date: 20050531
  Receipt Date: 20050520
  Transmission Date: 20051028
  Serious: Yes (Hospitalization)
  Sender: FDA-Public Use
  Company Number: 2005-03-2000

PATIENT
  Age: 62 Year
  Sex: Male

DRUGS (3)
  1. PEG-INTRON [Suspect]
     Indication: HEPATITIS C
     Dosage: 80 MCG QW SUBCUTANEOUS
     Route: 058
     Dates: start: 20050201, end: 20050322
  2. REBETOL [Suspect]
     Indication: HEPATITIS C
     Dosage: 800-600 MG* ORAL
     Route: 048
     Dates: start: 20050201, end: 20050220
  3. REBETOL [Suspect]
     Indication: HEPATITIS C
     Dosage: 800-600 MG* ORAL
     Route: 048
     Dates: start: 20050221, end: 20050328

REACTIONS (5)
  - ANAEMIA [None]
  - DIFFICULTY IN WALKING [None]
  - PYREXIA [None]
  - RASH [None]
  - SCIATICA [None]
